FAERS Safety Report 13218382 (Version 1)
Quarter: 2017Q1

REPORT INFORMATION
  Report Type: Other
  Country: US (occurrence: US)
  Receive Date: 20170210
  Receipt Date: 20170210
  Transmission Date: 20170428
  Serious: No
  Sender: FDA-Public Use
  Company Number: US-ACORDA-ACO_122569_2016

PATIENT
  Age: 32 Year
  Sex: Male

DRUGS (1)
  1. AMPYRA [Suspect]
     Active Substance: DALFAMPRIDINE
     Indication: MULTIPLE SCLEROSIS
     Dosage: 10 MG, Q 12 HRS

REACTIONS (5)
  - Pain in extremity [Unknown]
  - Urinary tract infection [Unknown]
  - Depression [Unknown]
  - Decreased appetite [Unknown]
  - Diarrhoea [Unknown]
